FAERS Safety Report 21724016 (Version 1)
Quarter: 2022Q4

REPORT INFORMATION
  Report Type: Spontaneous
  Country: US (occurrence: US)
  Receive Date: 20221213
  Receipt Date: 20221213
  Transmission Date: 20230113
  Serious: Yes (Hospitalization, Other)
  Sender: FDA-Public Use
  Company Number: US-ABBVIE-22K-163-4418280-00

PATIENT
  Age: 53 Year
  Sex: Female

DRUGS (2)
  1. LEUPROLIDE ACETATE [Suspect]
     Active Substance: LEUPROLIDE ACETATE
     Indication: Breast cancer
     Dosage: EXP DATES: 08 JUN 2020
     Route: 030
     Dates: start: 20200608
  2. LEVOTHYROXINE [Concomitant]
     Active Substance: LEVOTHYROXINE
     Indication: Pituitary tumour benign
     Dosage: 50 UG
     Dates: start: 2020

REACTIONS (1)
  - Pituitary apoplexy [Unknown]

NARRATIVE: CASE EVENT DATE: 20200612
